FAERS Safety Report 4544464-1 (Version None)
Quarter: 2004Q4

REPORT INFORMATION
  Report Type: 
  Country: None (occurrence: None)
  Receive Date: 20041230
  Receipt Date: 20041223
  Transmission Date: 20050328
  Serious: Yes (Hospitalization)
  Sender: FDA-Public Use
  Company Number: TAP2004Q01650

PATIENT
  Age: 84 Year
  Sex: Male

DRUGS (4)
  1. LUPRON DEPOT-4 [Suspect]
     Indication: PROSTATE CANCER
     Dosage: 30 MG, 1 IN 4 M
     Dates: start: 20040801
  2. NORVASC [Concomitant]
  3. HYDROCHLOROTHIAZIDE [Concomitant]
  4. ANCEF [Concomitant]

REACTIONS (12)
  - BLADDER CANCER [None]
  - CARDIAC FAILURE [None]
  - DIALYSIS [None]
  - DIZZINESS [None]
  - GENERALISED OEDEMA [None]
  - HOT FLUSH [None]
  - HYPOALBUMINAEMIA [None]
  - HYPOPROTEINAEMIA [None]
  - NEOPLASM GROWTH ACCELERATED [None]
  - PAIN IN EXTREMITY [None]
  - PULMONARY OEDEMA [None]
  - RENAL FAILURE [None]
